FAERS Safety Report 5613317-X (Version None)
Quarter: 2008Q1

REPORT INFORMATION
  Report Type: 
  Country: None (occurrence: None)
  Receive Date: 20080129
  Receipt Date: 20080110
  Transmission Date: 20080703
  Serious: Yes (Hospitalization)
  Sender: FDA-Public Use
  Company Number: VER_00094_2007

PATIENT
  Sex: Female

DRUGS (1)
  1. EPINEPHRINE [Suspect]
     Indication: ANAPHYLACTIC REACTION
     Dosage: 0.3 MG INTRAMUSCULAR
     Route: 030
     Dates: start: 20071208, end: 20071208

REACTIONS (5)
  - DEVICE MALFUNCTION [None]
  - DRUG INEFFECTIVE [None]
  - DYSPNOEA [None]
  - OBSTRUCTIVE AIRWAYS DISORDER [None]
  - PHARMACEUTICAL PRODUCT COMPLAINT [None]
